FAERS Safety Report 4989896-2 (Version None)
Quarter: 2006Q2

REPORT INFORMATION
  Report Type: 
  Country: None (occurrence: None)
  Receive Date: 20060424
  Receipt Date: 20051005
  Transmission Date: 20061013
  Serious: No
  Sender: FDA-Public Use
  Company Number: WSDF_00498

PATIENT
  Age: 50 Year
  Sex: Male
  Weight: 84.8226 kg

DRUGS (9)
  1. WINRHO SDF [Suspect]
     Indication: THROMBOCYTOPENIA
     Dosage: 75 MCG/KG ONCE
     Dates: start: 20050526, end: 20050526
  2. WINRHO SDF [Suspect]
     Indication: THROMBOCYTOPENIA
  3. CONSENSUS INTERFERON ALFA [Concomitant]
  4. ALDACTONE [Concomitant]
  5. NADOLOL [Concomitant]
  6. PREDNISONE TAB [Concomitant]
  7. ACETAMINOPHEN [Concomitant]
  8. DIPHENHYDRAMINE HCL [Concomitant]
  9. RIBAVIRIN [Concomitant]

REACTIONS (7)
  - CHILLS [None]
  - CHROMATURIA [None]
  - HYPERTENSION [None]
  - INFUSION RELATED REACTION [None]
  - INTRAVASCULAR HAEMOLYSIS [None]
  - MUSCLE SPASMS [None]
  - PYREXIA [None]
